FAERS Safety Report 10216446 (Version 1)
Quarter: 2014Q2

REPORT INFORMATION
  Report Type: Spontaneous
  Country: US (occurrence: US)
  Receive Date: 20140604
  Receipt Date: 20140604
  Transmission Date: 20141212
  Serious: Yes (Disabling, Other)
  Sender: FDA-Public Use
  Company Number: US-ASTRAZENECA-2014SE36773

PATIENT
  Age: 20990 Day
  Sex: Female
  Weight: 73.9 kg

DRUGS (12)
  1. ARIMIDEX [Suspect]
     Route: 048
     Dates: start: 20120628, end: 20140306
  2. FEMARA [Suspect]
     Route: 065
  3. AROMASIN [Concomitant]
     Route: 048
     Dates: start: 20140325
  4. COUMADIN [Concomitant]
  5. HEPARIN [Concomitant]
  6. WARFARIN [Concomitant]
     Route: 048
  7. CARVEDILOL [Concomitant]
     Route: 048
     Dates: start: 20111102
  8. CLONAZEPAM [Concomitant]
     Route: 048
     Dates: start: 20120306
  9. DIOVAN [Concomitant]
     Route: 048
     Dates: start: 20131030
  10. POTASSIUM CHLORIDE [Concomitant]
     Dosage: 10 % TWICE A DAY
     Route: 048
     Dates: start: 20131030
  11. ARIMIDEX/CYTOXAN [Concomitant]
     Dosage: 75 MG M2 AND 600 MG ONCE THREE WEEKS, FOUR CYCLES
     Dates: start: 20120220, end: 20120424
  12. MULTIPLE PAIN MEDICATIONS [Concomitant]

REACTIONS (16)
  - Back disorder [Unknown]
  - Pulmonary embolism [Unknown]
  - Anxiety disorder [Unknown]
  - Dysarthria [Unknown]
  - Lymphadenopathy [Unknown]
  - Chest pain [Unknown]
  - Renal failure chronic [Unknown]
  - Depression [Unknown]
  - Pain [Unknown]
  - Bone pain [Recovered/Resolved]
  - Arthralgia [Recovered/Resolved]
  - Diarrhoea [Unknown]
  - Fatigue [Unknown]
  - Nausea [Unknown]
  - Retching [Unknown]
  - Myalgia [Unknown]
